FAERS Safety Report 7745431-7 (Version None)
Quarter: 2011Q3

REPORT INFORMATION
  Report Type: 
  Country: None (occurrence: None)
  Receive Date: 20110829
  Receipt Date: 20110812
  Transmission Date: 20111222
  Serious: Yes (Other)
  Sender: FDA-Public Use
  Company Number: 2011SP037946

PATIENT
  Age: 20 Year
  Sex: Female

DRUGS (1)
  1. NEXPLANON [Suspect]
     Indication: CONTRACEPTION
     Dosage: 1 DF
     Dates: start: 20110712, end: 20110713

REACTIONS (5)
  - DYSPNOEA [None]
  - IMPLANT SITE PRURITUS [None]
  - MALAISE [None]
  - PHARYNGEAL DISORDER [None]
  - DRUG HYPERSENSITIVITY [None]
